FAERS Safety Report 7125261-X (Version None)
Quarter: 2010Q4

REPORT INFORMATION
  Report Type: 
  Country: None (occurrence: None)
  Receive Date: 20101112
  Receipt Date: 20101103
  Transmission Date: 20110411
  Serious: Yes (Hospitalization, Other)
  Sender: FDA-Public Use
  Company Number: IDA-00454

PATIENT
  Age: 3 Month
  Sex: Male

DRUGS (1)
  1. PROPRANOLOL [Suspect]
     Indication: HAEMANGIOMA
     Dosage: 3 MG/KG/DAY, ORAL
     Route: 048

REACTIONS (6)
  - DISEASE RECURRENCE [None]
  - DRUG DOSE OMISSION [None]
  - DRUG INEFFECTIVE [None]
  - DRUG RESISTANCE [None]
  - HAEMANGIOMA [None]
  - THERAPY CESSATION [None]
